FAERS Safety Report 9689702 (Version 2)
Quarter: 2013Q4

REPORT INFORMATION
  Report Type: Report from Study
  Country: AR (occurrence: AR)
  Receive Date: 20131115
  Receipt Date: 20131209
  Transmission Date: 20140711
  Serious: Yes (Death, Hospitalization)
  Sender: FDA-Public Use
  Company Number: AR-ROCHE-1304144

PATIENT
  Sex: Male

DRUGS (1)
  1. RANIBIZUMAB [Suspect]
     Indication: VISUAL IMPAIRMENT
     Route: 050
     Dates: start: 2012

REACTIONS (7)
  - Breast pain [Fatal]
  - Infarction [Fatal]
  - Pneumonia [Fatal]
  - Cardio-respiratory arrest [Unknown]
  - Eye ulcer [Unknown]
  - Eye injury [Unknown]
  - Diabetes mellitus [Unknown]
